FAERS Safety Report 5022445-1 (Version None)
Quarter: 2006Q2

REPORT INFORMATION
  Report Type: 
  Country: None (occurrence: None)
  Receive Date: 20060605
  Receipt Date: 20060518
  Transmission Date: 20061013
  Serious: Yes (Hospitalization)
  Sender: FDA-Public Use
  Company Number: DEU-2006-0002222

PATIENT
  Age: 95 Year
  Sex: Female
  Weight: 44 kg

DRUGS (4)
  1. OXY CR TAB 10 MG (OXYCODONE HYDROCHLORIDE) PROLONGED-RELEASE TABLET [Suspect]
     Indication: PAIN
     Dosage: 10 MG, BID, ORAL
     Route: 048
     Dates: start: 20060313, end: 20060401
  2. NEXIUM [Concomitant]
  3. ENALAPRIL MALEATE [Concomitant]
  4. LIPOCOL (COLESTYRAMINE) [Concomitant]

REACTIONS (5)
  - ABDOMINAL PAIN [None]
  - NAUSEA [None]
  - PNEUMONIA [None]
  - PSYCHOTIC DISORDER [None]
  - VOMITING [None]
